FAERS Safety Report 4729919-9 (Version None)
Quarter: 2005Q3

REPORT INFORMATION
  Report Type: 
  Country: None (occurrence: None)
  Receive Date: 20050728
  Receipt Date: 20050716
  Transmission Date: 20060218
  Serious: Yes (Hospitalization, Other)
  Sender: FDA-Public Use
  Company Number: 2005BI011328

PATIENT
  Age: 45 Year
  Sex: Male

DRUGS (3)
  1. AVONEX [Suspect]
     Indication: MULTIPLE SCLEROSIS
     Dosage: 30 UG;QW; IM
     Route: 030
     Dates: start: 20030923
  2. STEROIDS [Concomitant]
  3. COPAXONE [Concomitant]

REACTIONS (5)
  - ANGINA PECTORIS [None]
  - ANXIETY [None]
  - MUSCLE SPASMS [None]
  - MYOCARDIAL INFARCTION [None]
  - STRESS [None]
